FAERS Safety Report 7350217-1 (Version None)
Quarter: 2011Q1

REPORT INFORMATION
  Report Type: 
  Country: None (occurrence: None)
  Receive Date: 20110314
  Receipt Date: 20110304
  Transmission Date: 20110831
  Serious: Yes (Hospitalization, Other)
  Sender: FDA-Public Use
  Company Number: DE-GENZYME-RENA-1001111

PATIENT
  Sex: Male
  Weight: 74 kg

DRUGS (10)
  1. RENVELA [Suspect]
     Indication: HYPERPHOSPHATAEMIA
     Dosage: 2.4 G, QD
     Route: 048
     Dates: start: 20091125
  2. RENVELA [Suspect]
     Dosage: UNK
     Route: 048
  3. BERLINSULIN [Concomitant]
     Indication: DIABETES MELLITUS
     Dosage: 38 IU, QD
     Dates: start: 20070101
  4. SIMVASTATIN [Concomitant]
     Indication: HYPERCHOLESTEROLAEMIA
     Dosage: 40 MG, QD
     Dates: start: 20080824
  5. CALCIUM ACETATE [Concomitant]
     Indication: BLOOD PHOSPHORUS ABNORMAL
     Dosage: 1500 MG, QD
  6. LEVOTHYROXINE SODIUM [Concomitant]
     Indication: HYPOTHYROIDISM
     Dosage: 50 MCG, QD
     Dates: start: 20070101
  7. TORASEMID [Concomitant]
     Indication: RENAL FAILURE
     Dosage: 100 MG, QD
     Dates: start: 20100510
  8. ACETYLCYSTEINE [Concomitant]
     Indication: PROPHYLAXIS
     Dosage: 100 MG, QD
     Route: 065
     Dates: start: 20070101
  9. RENVELA [Suspect]
     Dosage: 2.4 G, QD
     Route: 048
  10. AMIODARONE [Concomitant]
     Dosage: 200 MG, QD
     Dates: start: 20080101

REACTIONS (7)
  - CORONARY ARTERY DISEASE [None]
  - DYSPNOEA [None]
  - OEDEMA [None]
  - CONGESTIVE CARDIOMYOPATHY [None]
  - FATIGUE [None]
  - GENERAL PHYSICAL HEALTH DETERIORATION [None]
  - PALPITATIONS [None]
